FAERS Safety Report 4465967-4 (Version None)
Quarter: 2004Q4

REPORT INFORMATION
  Report Type: 
  Country: None (occurrence: None)
  Receive Date: 20041001
  Receipt Date: 20041001
  Transmission Date: 20050328
  Serious: Yes (Life-Threatening)
  Sender: FDA-Public Use
  Company Number: None

PATIENT
  Age: 28 Year
  Sex: Female
  Weight: 87.0906 kg

DRUGS (3)
  1. PAXIL [Suspect]
     Indication: ANXIETY
     Dosage: 30 MG
     Dates: start: 20040801, end: 20040901
  2. PAXIL [Suspect]
     Indication: DEPRESSION
     Dosage: 30 MG
     Dates: start: 20040801, end: 20040901
  3. PAXIL [Suspect]
     Indication: SUICIDAL IDEATION
     Dosage: 30 MG
     Dates: start: 20040801, end: 20040901

REACTIONS (25)
  - ABDOMINAL DISCOMFORT [None]
  - AGGRESSION [None]
  - AGITATION [None]
  - ASTHENIA [None]
  - CONFUSIONAL STATE [None]
  - COORDINATION ABNORMAL [None]
  - DIARRHOEA [None]
  - DISTURBANCE IN ATTENTION [None]
  - DIZZINESS [None]
  - FATIGUE [None]
  - GAIT DISTURBANCE [None]
  - HYPERHIDROSIS [None]
  - INFLUENZA LIKE ILLNESS [None]
  - IRRITABILITY [None]
  - LETHARGY [None]
  - MALAISE [None]
  - MEMORY IMPAIRMENT [None]
  - NAUSEA [None]
  - NIGHTMARE [None]
  - PARAESTHESIA [None]
  - PYREXIA [None]
  - SLEEP DISORDER [None]
  - TREMOR [None]
  - VERTIGO [None]
  - VOMITING [None]
